FAERS Safety Report 20184563 (Version 1)
Quarter: 2021Q4

REPORT INFORMATION
  Report Type: Spontaneous
  Country: US (occurrence: US)
  Receive Date: 20211214
  Receipt Date: 20211214
  Transmission Date: 20220303
  Serious: No
  Sender: FDA-Public Use
  Company Number: US-REGENERON PHARMACEUTICALS, INC.-2021-20458

PATIENT

DRUGS (6)
  1. EYLEA [Suspect]
     Active Substance: AFLIBERCEPT
     Indication: Diabetic retinopathy
     Dosage: EVERY 4-5 WEEKS
     Route: 031
     Dates: start: 2020
  2. EYLEA [Suspect]
     Active Substance: AFLIBERCEPT
     Dosage: EVERY 4-5 WEEKS
     Route: 031
  3. EYLEA [Suspect]
     Active Substance: AFLIBERCEPT
     Dosage: EVERY 4-5 WEEKS,
     Route: 031
  4. EYLEA [Suspect]
     Active Substance: AFLIBERCEPT
     Dosage: EVERY 4-5 WEEKS
     Route: 031
     Dates: start: 2020
  5. EYLEA [Suspect]
     Active Substance: AFLIBERCEPT
     Dosage: EVERY 4-5 WEEKS
     Route: 031
     Dates: start: 2020
  6. EYLEA [Suspect]
     Active Substance: AFLIBERCEPT
     Dosage: EVERY 4-5 WEEKS, LAST INJECTION
     Route: 031
     Dates: start: 202101, end: 202101

REACTIONS (6)
  - Weight decreased [Unknown]
  - Vitreous floaters [Recovered/Resolved]
  - Eye pain [Unknown]
  - Injection site pain [Unknown]
  - Eye swelling [Unknown]
  - Ocular hyperaemia [Unknown]

NARRATIVE: CASE EVENT DATE: 20200101
